FAERS Safety Report 8837434 (Version 1)
Quarter: 2012Q4

REPORT INFORMATION
  Report Type: 
  Country: US (occurrence: US)
  Receive Date: 20121012
  Receipt Date: 20121012
  Transmission Date: 20130627
  Serious: Yes (Life-Threatening, Hospitalization)
  Sender: FDA-Public Use
  Company Number: PHEH2012US020032

PATIENT
  Age: 55 Year
  Sex: Female
  Weight: 61.22 kg

DRUGS (12)
  1. AFINITOR [Suspect]
     Indication: BREAST CANCER
     Dosage: 10 mg, QD
     Route: 048
     Dates: start: 201204, end: 20120925
  2. TAMOXIFEN [Concomitant]
  3. EXEMESTANE [Concomitant]
     Dates: start: 201206
  4. ZOMETA [Concomitant]
  5. PEPCID [Concomitant]
  6. ZOCOR [Concomitant]
  7. NEURONTIN [Concomitant]
  8. LORTAB [Concomitant]
  9. LOPRESSOR [Concomitant]
  10. DIOVAN HCT [Concomitant]
  11. ZOFRAN [Concomitant]
  12. CALCIUM [Concomitant]

REACTIONS (7)
  - Pleural effusion [Not Recovered/Not Resolved]
  - Haemoptysis [Not Recovered/Not Resolved]
  - Dyspnoea [Not Recovered/Not Resolved]
  - Fatigue [Not Recovered/Not Resolved]
  - Renal failure acute [Not Recovered/Not Resolved]
  - Flank pain [Not Recovered/Not Resolved]
  - Weight decreased [Not Recovered/Not Resolved]
